FAERS Safety Report 5337091-X (Version None)
Quarter: 2007Q2

REPORT INFORMATION
  Report Type: 
  Country: None (occurrence: None)
  Receive Date: 20070529
  Receipt Date: 20070524
  Transmission Date: 20071010
  Serious: Yes (Other)
  Sender: FDA-Public Use
  Company Number: CA-BRISTOL-MYERS SQUIBB COMPANY-13792239

PATIENT
  Age: 69 Year
  Sex: Male
  Weight: 53 kg

DRUGS (7)
  1. CETUXIMAB [Suspect]
     Indication: NEOPLASM MALIGNANT
     Dates: start: 20070409, end: 20070409
  2. CISPLATIN [Suspect]
     Indication: NEOPLASM MALIGNANT
     Dates: start: 20070409, end: 20070409
  3. RADIATION THERAPY [Suspect]
     Indication: NEOPLASM MALIGNANT
  4. COLACE [Concomitant]
  5. FENTANYL [Concomitant]
  6. OXYCONTIN [Concomitant]
  7. TIMENTIN [Concomitant]

REACTIONS (6)
  - BLOOD SODIUM DECREASED [None]
  - GRANULOCYTE COUNT DECREASED [None]
  - HAEMOGLOBIN [None]
  - HYPOTENSION [None]
  - PYREXIA [None]
  - STOMATITIS [None]
